FAERS Safety Report 7184321-8 (Version None)
Quarter: 2010Q4

REPORT INFORMATION
  Report Type: 
  Country: None (occurrence: None)
  Receive Date: 20101222
  Receipt Date: 20100521
  Transmission Date: 20110411
  Serious: No
  Sender: FDA-Public Use
  Company Number: US-AMGEN-KDL413879

PATIENT

DRUGS (7)
  1. ENBREL [Suspect]
     Indication: PRODUCT USED FOR UNKNOWN INDICATION
     Dosage: 50 MG, QWK
  2. XALATAN [Concomitant]
     Dosage: .005 %, UNK
  3. HYDROXYCHLOROQUINE SULFATE [Concomitant]
     Dosage: 200 MG, UNK
  4. AMLODIPINE [Concomitant]
     Dosage: 10 MG, UNK
  5. ALKA-SELTZER [Concomitant]
     Dosage: UNK UNK, UNK
  6. RABEPRAZOLE SODIUM [Concomitant]
     Dosage: 20 MG, UNK
  7. OXYCODONE [Concomitant]
     Dosage: 20 MG, UNK

REACTIONS (3)
  - INJECTION SITE ERYTHEMA [None]
  - INJECTION SITE PAIN [None]
  - INJECTION SITE REACTION [None]
